FAERS Safety Report 10006762 (Version 1)
Quarter: 2014Q1

REPORT INFORMATION
  Report Type: Spontaneous
  Country: US (occurrence: None)
  Receive Date: 20140312
  Receipt Date: 20140312
  Transmission Date: 20141002
  Serious: Yes (Other)
  Sender: FDA-Public Use
  Company Number: None

PATIENT
  Age: 49 Year
  Sex: Female

DRUGS (10)
  1. REMICAID [Suspect]
     Dosage: REMICAID WAS INFUSION 5G HUMIRA + ENBREL CLICK PENS
     Dates: start: 20130131, end: 20140119
  2. LEXAPRO [Concomitant]
  3. NEXIUM [Concomitant]
  4. FOLIC ACID [Concomitant]
  5. VITAMIN D [Concomitant]
  6. B COMPLEX [Concomitant]
  7. BIOTIN [Concomitant]
  8. TUMERIC FOR INFLAMMATION [Concomitant]
  9. HUMIRA [Suspect]
  10. ENBREL [Suspect]

REACTIONS (4)
  - Pustular psoriasis [None]
  - Onychomadesis [None]
  - Alopecia [None]
  - Psoriasis [None]
